FAERS Safety Report 6461519-5 (Version None)
Quarter: 2009Q4

REPORT INFORMATION
  Report Type: 
  Country: None (occurrence: None)
  Receive Date: 20091123
  Receipt Date: 20091111
  Transmission Date: 20100525
  Serious: Yes (Other)
  Sender: FDA-Public Use
  Company Number: 09-001477

PATIENT
  Age: 46 Year
  Sex: Female
  Weight: 54.4 kg

DRUGS (2)
  1. ESTRACE [Suspect]
     Dosage: 1/4 APPLICATOR, QOD FOR 1-2 DOSES, THEN Q3RD DAY, VAGINAL
     Route: 067
     Dates: start: 20090831, end: 20090901
  2. PROTONIX [Concomitant]

REACTIONS (1)
  - CONVULSION [None]
